FAERS Safety Report 9262063 (Version 1)
Quarter: 2013Q2

REPORT INFORMATION
  Report Type: Report from Study
  Country: JP (occurrence: JP)
  Receive Date: 20130430
  Receipt Date: 20130430
  Transmission Date: 20140414
  Serious: Yes (Other)
  Sender: FDA-Public Use
  Company Number: JP-009507513-2012SP017005

PATIENT
  Age: 69 Year
  Sex: Male
  Weight: 77 kg

DRUGS (10)
  1. PEGINTRON [Suspect]
     Indication: CHRONIC HEPATITIS C
     Dosage: 0.6 ?G/KG, QW
     Route: 058
     Dates: start: 20120315, end: 20120319
  2. REBETOL [Suspect]
     Indication: CHRONIC HEPATITIS C
     Dosage: 400 MG, QD
     Route: 048
     Dates: start: 20120315, end: 20120319
  3. TELAVIC [Suspect]
     Indication: CHRONIC HEPATITIS C
     Dosage: 1500 MG, QD
     Route: 048
     Dates: start: 20120315, end: 20120319
  4. URSO [Concomitant]
     Indication: CHRONIC HEPATITIS C
     Dosage: 300 MG, QD
     Route: 048
     Dates: end: 20120318
  5. URSO [Concomitant]
     Dosage: 300 MG, QD
     Route: 048
     Dates: start: 20120321
  6. OLMETEC [Concomitant]
     Indication: HYPERTENSION
     Dosage: 10 MG, QD
     Route: 048
     Dates: end: 20120318
  7. OLMETEC [Concomitant]
     Dosage: 10 MG, QD
     Route: 048
     Dates: start: 20120321
  8. HORMONES (UNSPECIFIED) [Concomitant]
     Indication: DIABETES MELLITUS
     Dosage: 14 UNITS (MORNING), 18 UNITS (DAYTIME), 16 UNITS (EVENING) PER DAY
     Route: 058
     Dates: end: 20120612
  9. LANTUS [Concomitant]
     Indication: DIABETES MELLITUS
     Dosage: DOSE: 14 (UNDER 1000 UNIT) UPDATE (06JUN2012)
     Route: 058
  10. TAKEPRON [Concomitant]
     Indication: PROPHYLAXIS
     Dosage: 1 DF, QD
     Route: 042
     Dates: start: 20120318, end: 20120321

REACTIONS (2)
  - Hepatic encephalopathy [Recovering/Resolving]
  - Renal impairment [Recovering/Resolving]
